FAERS Safety Report 25562452 (Version 4)
Quarter: 2025Q3

REPORT INFORMATION
  Report Type: Report from Study
  Country: US (occurrence: US)
  Receive Date: 20250716
  Receipt Date: 20250924
  Transmission Date: 20251020
  Serious: Yes (Other)
  Sender: TAKEDA
  Company Number: US-TAKEDA-2025TUS051028

PATIENT
  Sex: Female
  Weight: 71 kg

DRUGS (20)
  1. HUMAN IMMUNOGLOBULIN G [Suspect]
     Active Substance: HUMAN IMMUNOGLOBULIN G
     Indication: Myasthenia gravis
     Dosage: 60 GRAM, Q3WEEKS
  2. EPINEPHRINE [Concomitant]
     Active Substance: EPINEPHRINE
  3. ACETAMINOPHEN [Concomitant]
     Active Substance: ACETAMINOPHEN
  4. ATORVASTATIN CALCIUM [Concomitant]
     Active Substance: ATORVASTATIN CALCIUM
  5. PYRIDOSTIGMINE BROMIDE [Concomitant]
     Active Substance: PYRIDOSTIGMINE BROMIDE
  6. VITAMIN B [Concomitant]
     Active Substance: VITAMIN B
  7. HEPARIN [Concomitant]
     Active Substance: HEPARIN SODIUM
  8. SODIUM CHLORIDE [Concomitant]
     Active Substance: SODIUM CHLORIDE
  9. LOSARTAN POTASSIUM [Concomitant]
     Active Substance: LOSARTAN POTASSIUM
  10. FENOFIBRATE [Concomitant]
     Active Substance: FENOFIBRATE
  11. LEVOTHYROXINE SODIUM [Concomitant]
     Active Substance: LEVOTHYROXINE SODIUM
  12. VITAMIN D3 [Concomitant]
     Active Substance: CHOLECALCIFEROL
  13. PREDNISONE [Concomitant]
     Active Substance: PREDNISONE
  14. LIDOCAINE [Concomitant]
     Active Substance: LIDOCAINE
  15. MYCOPHENOLATE MOFETIL [Concomitant]
     Active Substance: MYCOPHENOLATE MOFETIL
  16. SPIRONOLACTONE [Concomitant]
     Active Substance: SPIRONOLACTONE
  17. ASPIRIN [Concomitant]
     Active Substance: ASPIRIN
  18. DIPHENHYDRAMINE [Concomitant]
     Active Substance: DIPHENHYDRAMINE
  19. DIPHENHYDRAMINE HYDROCHLORIDE [Concomitant]
     Active Substance: DIPHENHYDRAMINE HYDROCHLORIDE
  20. METFORMIN [Concomitant]
     Active Substance: METFORMIN HYDROCHLORIDE

REACTIONS (20)
  - Diabetes mellitus [Unknown]
  - Arnold-Chiari malformation [Unknown]
  - Myasthenia gravis [Unknown]
  - Peripheral swelling [Unknown]
  - Cystitis [Unknown]
  - Infusion site coldness [Unknown]
  - Device infusion issue [Unknown]
  - Musculoskeletal pain [Unknown]
  - Intervertebral disc degeneration [Unknown]
  - Eye disorder [Unknown]
  - Multiple allergies [Unknown]
  - Renal disorder [Unknown]
  - Body temperature abnormal [Unknown]
  - Insurance issue [Unknown]
  - Product use issue [Unknown]
  - Photosensitivity reaction [Unknown]
  - Swelling [Unknown]
  - Infusion site extravasation [Unknown]
  - Blood pressure increased [Unknown]
  - Nausea [Unknown]
